FAERS Safety Report 8219049-6 (Version None)
Quarter: 2012Q1

REPORT INFORMATION
  Report Type: 
  Country: None (occurrence: None)
  Receive Date: 20120319
  Receipt Date: 20120310
  Transmission Date: 20120608
  Serious: Yes (Death, Hospitalization)
  Sender: FDA-Public Use
  Company Number: GT-PFIZER INC-2012069949

PATIENT
  Age: 65 Year
  Sex: Male

DRUGS (4)
  1. PROPRANOLOL [Concomitant]
  2. ALDACTONE [Concomitant]
  3. IRON [Concomitant]
  4. PANTOPRAZOLE [Suspect]
     Indication: HEPATIC CIRRHOSIS
     Dosage: 40 MG, UNK
     Route: 048
     Dates: start: 20090101

REACTIONS (6)
  - HEPATIC CIRRHOSIS [None]
  - ASCITES [None]
  - PLATELET COUNT DECREASED [None]
  - OFF LABEL USE [None]
  - GINGIVAL BLEEDING [None]
  - MELAENA [None]
